FAERS Safety Report 4611769-5 (Version None)
Quarter: 2005Q2

REPORT INFORMATION
  Report Type: 
  Country: None (occurrence: None)
  Receive Date: 20050308
  Receipt Date: 20041206
  Transmission Date: 20051028
  Serious: Yes (Other)
  Sender: FDA-Public Use
  Company Number: 2004UW24927

PATIENT
  Age: 70 Year
  Sex: Female
  Weight: 67.131 kg

DRUGS (14)
  1. CRESTOR [Suspect]
     Indication: BLOOD CHOLESTEROL INCREASED
     Dosage: 20 MG PO
     Route: 048
     Dates: end: 20041101
  2. ZETIA [Concomitant]
  3. WELCHOL [Concomitant]
  4. PLAVIX [Concomitant]
  5. ASPIRIN [Concomitant]
  6. ATACAND HCT [Concomitant]
  7. PROZAC [Concomitant]
  8. TOPROL-XL [Concomitant]
  9. CALCIUM GLUCONATE [Concomitant]
  10. NEXIUM [Concomitant]
  11. MULTI-VITAMINS [Concomitant]
  12. FOLIC ACID [Concomitant]
  13. ACTONEL [Concomitant]
  14. MIRAPEX [Concomitant]

REACTIONS (7)
  - HYPERHIDROSIS [None]
  - ILL-DEFINED DISORDER [None]
  - MUSCLE ATROPHY [None]
  - MUSCLE CONTRACTIONS INVOLUNTARY [None]
  - MUSCLE SPASMS [None]
  - MYALGIA [None]
  - PARAESTHESIA [None]
